FAERS Safety Report 9475468 (Version 1)
Quarter: 2013Q3

REPORT INFORMATION
  Report Type: Spontaneous
  Country: HK (occurrence: HK)
  Receive Date: 20130826
  Receipt Date: 20130826
  Transmission Date: 20140515
  Serious: Yes (Other)
  Sender: FDA-Public Use
  Company Number: HK-ROCHE-1264329

PATIENT
  Sex: Female

DRUGS (1)
  1. ROCEPHIN [Suspect]
     Indication: STREPTOCOCCAL INFECTION
     Route: 042

REACTIONS (2)
  - Tachycardia foetal [Recovered/Resolved]
  - Exposure during pregnancy [Unknown]
